FAERS Safety Report 12470391 (Version 5)
Quarter: 2024Q4

REPORT INFORMATION
  Report Type: Report from Study
  Country: US (occurrence: US)
  Receive Date: 20160616
  Receipt Date: 20241026
  Transmission Date: 20250115
  Serious: Yes (Other)
  Sender: AMGEN
  Company Number: US-AMGEN-USASL2016074928

PATIENT
  Age: 59 Year
  Sex: Male

DRUGS (8)
  1. ENBREL [Suspect]
     Active Substance: ETANERCEPT
     Indication: Rheumatoid arthritis
     Dosage: 50 MILLIGRAM, QWK
     Route: 065
     Dates: start: 20160608, end: 201608
  2. ENBREL [Suspect]
     Active Substance: ETANERCEPT
     Indication: Polyarthritis
     Dosage: 50 MILLIGRAM, QWK
     Route: 065
     Dates: start: 201609
  3. ENBREL [Suspect]
     Active Substance: ETANERCEPT
     Indication: Scleroderma
     Dosage: 50 MILLIGRAM, QWK
     Route: 065
     Dates: start: 20211111
  4. ENBREL [Suspect]
     Active Substance: ETANERCEPT
     Dosage: 50 MILLIGRAM, QWK
     Route: 065
  5. ARAVA [Suspect]
     Active Substance: LEFLUNOMIDE
     Indication: Product used for unknown indication
     Dosage: UNK
     Route: 065
  6. ALEVE [Concomitant]
     Active Substance: NAPROXEN SODIUM
     Dosage: 1000 MILLIGRAM, QD
     Route: 065
  7. METHOTREXATE [Concomitant]
     Active Substance: METHOTREXATE
     Dosage: UNK
  8. SULFASALAZINE [Concomitant]
     Active Substance: SULFASALAZINE
     Dosage: UNK
     Dates: start: 20170424, end: 20170615

REACTIONS (14)
  - Knee arthroplasty [Unknown]
  - Limb operation [Unknown]
  - Hip arthroplasty [Recovering/Resolving]
  - Shoulder fracture [Unknown]
  - Cough [Unknown]
  - Anosmia [Unknown]
  - Ageusia [Unknown]
  - Abdominal pain upper [Unknown]
  - Sinusitis [Unknown]
  - Chest pain [Unknown]
  - Skin laceration [Unknown]
  - Wound secretion [Unknown]
  - Skin haemorrhage [Unknown]
  - Surgery [Unknown]

NARRATIVE: CASE EVENT DATE: 20160601
